FAERS Safety Report 6379782-8 (Version None)
Quarter: 2009Q3

REPORT INFORMATION
  Report Type: 
  Country: None (occurrence: None)
  Receive Date: 20090924
  Receipt Date: 20090924
  Transmission Date: 20100115
  Serious: Yes (Other)
  Sender: FDA-Public Use
  Company Number: None

PATIENT
  Sex: Male
  Weight: 99.7913 kg

DRUGS (1)
  1. TOPIRAMATE [Suspect]
     Indication: MIGRAINE
     Dosage: 75MG DAILY PO
     Route: 048
     Dates: start: 20090501, end: 20090923

REACTIONS (2)
  - MIGRAINE [None]
  - PRODUCT SUBSTITUTION ISSUE [None]
